FAERS Safety Report 4643908-4 (Version None)
Quarter: 2005Q2

REPORT INFORMATION
  Report Type: 
  Country: None (occurrence: None)
  Receive Date: 20050419
  Receipt Date: 20050411
  Transmission Date: 20051028
  Serious: No
  Sender: FDA-Public Use
  Company Number: 2005-127361-NL

PATIENT
  Age: 42 Year
  Sex: Male

DRUGS (2)
  1. TICE BCG [Suspect]
     Indication: BLADDER CANCER
     Dosage: 27 MG WEEKLY
     Route: 043
     Dates: start: 20040713
  2. INTERFERON ALFA-2B [Suspect]
     Indication: BLADDER CANCER
     Dosage: 10 MIU WEEKLY
     Route: 043
     Dates: start: 20040713

REACTIONS (4)
  - HAEMATURIA [None]
  - HAEMORRHAGE URINARY TRACT [None]
  - URETHRAL OBSTRUCTION [None]
  - URINARY RETENTION [None]
